FAERS Safety Report 11288456 (Version 1)
Quarter: 2015Q3

REPORT INFORMATION
  Report Type: Spontaneous
  Country: US (occurrence: US)
  Receive Date: 20150721
  Receipt Date: 20150721
  Transmission Date: 20151125
  Serious: No
  Sender: FDA-Public Use
  Company Number: US-UNITED THERAPEUTICS-UNT-2015-002697

PATIENT
  Sex: Female
  Weight: 65.76 kg

DRUGS (4)
  1. REVATIO [Concomitant]
     Active Substance: SILDENAFIL CITRATE
     Indication: PRODUCT USED FOR UNKNOWN INDICATION
  2. OPSUMIT [Concomitant]
     Active Substance: MACITENTAN
     Indication: PRODUCT USED FOR UNKNOWN INDICATION
  3. REMODULIN [Suspect]
     Active Substance: TREPROSTINIL
     Indication: PULMONARY ARTERIAL HYPERTENSION
     Dosage: 0.059 ?G/KG/MIN, CONTINUING
     Route: 058
     Dates: start: 20130826
  4. REMODULIN [Suspect]
     Active Substance: TREPROSTINIL
     Dosage: 0.059 ?G/KG/MIN, CONTINUING
     Route: 058
     Dates: start: 20130823

REACTIONS (12)
  - Infusion site haemorrhage [Unknown]
  - Infusion site oedema [Unknown]
  - Infusion site irritation [Unknown]
  - Fatigue [Unknown]
  - Infusion site warmth [Unknown]
  - Infusion site pustule [Unknown]
  - Dermatitis contact [Unknown]
  - Pyrexia [Unknown]
  - Infusion site erythema [Unknown]
  - Infusion site infection [Not Recovered/Not Resolved]
  - Oedema peripheral [Unknown]
  - Tenderness [Unknown]
